FAERS Safety Report 4923947-6 (Version None)
Quarter: 2006Q1

REPORT INFORMATION
  Report Type: 
  Country: None (occurrence: None)
  Receive Date: 20060227
  Receipt Date: 20050923
  Transmission Date: 20060701
  Serious: Yes (Hospitalization)
  Sender: FDA-Public Use
  Company Number: US-MERCK-0509USA03962

PATIENT
  Age: 55 Year
  Sex: Male
  Weight: 77 kg

DRUGS (12)
  1. VIOXX [Suspect]
     Indication: OSTEOARTHRITIS
     Route: 048
     Dates: start: 20040203, end: 20040425
  2. VIOXX [Suspect]
     Route: 048
     Dates: start: 20040203, end: 20040425
  3. VIOXX [Suspect]
     Indication: ARTHRALGIA
     Route: 048
     Dates: start: 20040203, end: 20040425
  4. VIOXX [Suspect]
     Route: 048
     Dates: start: 20040203, end: 20040425
  5. ENALAPRIL MALEATE [Concomitant]
     Route: 065
  6. XALATAN [Concomitant]
     Route: 065
  7. DOXAZOSIN MESYLATE [Concomitant]
     Route: 065
  8. PLAVIX [Concomitant]
     Route: 065
  9. LIPITOR [Concomitant]
     Route: 065
  10. ASPIRIN [Concomitant]
     Route: 065
  11. WARFARIN [Concomitant]
     Route: 065
  12. RANITIDINE [Concomitant]
     Route: 065

REACTIONS (11)
  - ANAEMIA [None]
  - AORTIC DILATATION [None]
  - ASTHENIA [None]
  - CEREBRAL ARTERY STENOSIS [None]
  - CEREBROVASCULAR ACCIDENT [None]
  - CHEST PAIN [None]
  - FAECES DISCOLOURED [None]
  - GASTROINTESTINAL HAEMORRHAGE [None]
  - HAEMORRHOIDS [None]
  - HERNIA REPAIR [None]
  - LOWER GASTROINTESTINAL HAEMORRHAGE [None]
